FAERS Safety Report 19626855 (Version 1)
Quarter: 2021Q3

REPORT INFORMATION
  Report Type: Spontaneous
  Country: US (occurrence: US)
  Receive Date: 20210729
  Receipt Date: 20210729
  Transmission Date: 20211014
  Serious: No
  Sender: FDA-Public Use
  Company Number: US-ORGANON-O2107USA002103

PATIENT
  Age: 94 Year
  Sex: Male

DRUGS (1)
  1. ZETIA [Suspect]
     Active Substance: EZETIMIBE
     Dosage: UNK
     Dates: end: 20210708

REACTIONS (2)
  - Product dose omission issue [Unknown]
  - No adverse event [Unknown]

NARRATIVE: CASE EVENT DATE: 20210708
